FAERS Safety Report 17223305 (Version 4)
Quarter: 2023Q1

REPORT INFORMATION
  Report Type: Report from Study
  Country: DE (occurrence: DE)
  Receive Date: 20200102
  Receipt Date: 20230302
  Transmission Date: 20230418
  Serious: Yes (Death, Other)
  Sender: FDA-Public Use
  Company Number: DE-EMA-DD-20191206-SAHU_K-173436

PATIENT
  Age: 61 Year
  Sex: Female
  Weight: 54 kg

DRUGS (3)
  1. CARBOPLATIN [Suspect]
     Active Substance: CARBOPLATIN
     Indication: Non-small cell lung cancer
     Dosage: 6 MG *MIN/ML
     Route: 041
     Dates: start: 20161227, end: 20170117
  2. ABRAXANE [Suspect]
     Active Substance: PACLITAXEL
     Indication: Non-small cell lung cancer
     Dosage: 100 MG/M2 DAILY;
     Route: 041
     Dates: start: 20161227, end: 20170117
  3. ABRAXANE [Suspect]
     Active Substance: PACLITAXEL
     Dosage: 100 MG/M2 DAILY;
     Route: 065
     Dates: start: 20170117, end: 20170117

REACTIONS (2)
  - Non-small cell lung cancer [Fatal]
  - Thrombocytopenia [Not Recovered/Not Resolved]

NARRATIVE: CASE EVENT DATE: 20170124
